FAERS Safety Report 8446275-3 (Version None)
Quarter: 2012Q2

REPORT INFORMATION
  Report Type: 
  Country: None (occurrence: None)
  Receive Date: 20120618
  Receipt Date: 20120614
  Transmission Date: 20120825
  Serious: Yes (Hospitalization)
  Sender: FDA-Public Use
  Company Number: US-GILEAD-2012-0056083

PATIENT
  Sex: Female

DRUGS (3)
  1. TYVASO [Suspect]
  2. LETAIRIS [Suspect]
     Indication: PULMONARY HYPERTENSION
     Dosage: 10 MG, UNK
     Route: 048
     Dates: start: 20110818
  3. LETAIRIS [Suspect]
     Indication: LIVER DISORDER

REACTIONS (4)
  - COUGH [None]
  - VOMITING [None]
  - HEADACHE [None]
  - CARDIAC ARREST [None]
